FAERS Safety Report 18969700 (Version 8)
Quarter: 2023Q4

REPORT INFORMATION
  Report Type: Report from Study
  Country: US (occurrence: US)
  Receive Date: 20210304
  Receipt Date: 20231222
  Transmission Date: 20240109
  Serious: Yes (Hospitalization, Other)
  Sender: FDA-Public Use
  Company Number: US-SHIRE-US202031729

PATIENT
  Age: 42 Year
  Sex: Female

DRUGS (2)
  1. HUMAN IMMUNOGLOBULIN G [Suspect]
     Active Substance: HUMAN IMMUNOGLOBULIN G
     Indication: Primary immunodeficiency syndrome
     Dosage: 50 GRAM, MONTHLY
     Route: 042
  2. HUMAN IMMUNOGLOBULIN G [Suspect]
     Active Substance: HUMAN IMMUNOGLOBULIN G
     Indication: Immunodeficiency common variable
     Dosage: 82 GRAM, MONTHLY
     Route: 042

REACTIONS (20)
  - Pneumonia [Unknown]
  - COVID-19 [Not Recovered/Not Resolved]
  - Cerebrovascular accident [Unknown]
  - Bronchiectasis [Unknown]
  - Post-acute COVID-19 syndrome [Not Recovered/Not Resolved]
  - Arthritis [Unknown]
  - Fibromyalgia [Unknown]
  - Cognitive disorder [Unknown]
  - Weight increased [Unknown]
  - Immunoglobulins decreased [Unknown]
  - Infection [Unknown]
  - Brain fog [Unknown]
  - Bronchitis [Unknown]
  - Malabsorption [Unknown]
  - Poor venous access [Unknown]
  - Pain [Unknown]
  - Malaise [Unknown]
  - Headache [Unknown]
  - Fatigue [Unknown]
  - Bacterial infection [Unknown]

NARRATIVE: CASE EVENT DATE: 20210222
